FAERS Safety Report 10065686 (Version 1)
Quarter: 2014Q2

REPORT INFORMATION
  Report Type: Spontaneous
  Country: IT (occurrence: IT)
  Receive Date: 20140408
  Receipt Date: 20140408
  Transmission Date: 20141212
  Serious: Yes (Other)
  Sender: FDA-Public Use
  Company Number: PHHY2014IT038900

PATIENT
  Age: 76 Year
  Sex: Female

DRUGS (7)
  1. REPAGLINIDE [Suspect]
     Indication: DIABETES MELLITUS
     Dosage: 2 DF, QD
     Route: 048
     Dates: start: 20140101, end: 20140208
  2. CALCIUM CARBONATE,CHOLECALCIFEROL [Suspect]
     Route: 048
  3. ACTOS [Suspect]
     Indication: DIABETES MELLITUS
     Dosage: 2 DF, QD
     Route: 048
     Dates: start: 20140101, end: 20140208
  4. MODURETIC [Suspect]
     Indication: HYPERTENSION
     Dosage: 1 DF, QD
     Route: 048
     Dates: start: 20140101, end: 20140208
  5. PLAVIX [Concomitant]
     Route: 048
  6. PEPTAZOL [Concomitant]
     Route: 048
  7. PROCAPTAN [Concomitant]
     Route: 048

REACTIONS (3)
  - Hypoglycaemia [Recovering/Resolving]
  - Hyponatraemia [Recovering/Resolving]
  - Malaise [Recovering/Resolving]
